FAERS Safety Report 5224998-7 (Version None)
Quarter: 2007Q1

REPORT INFORMATION
  Report Type: 
  Country: None (occurrence: None)
  Receive Date: 20070126
  Receipt Date: 20070119
  Transmission Date: 20070707
  Serious: Yes (Other)
  Sender: FDA-Public Use
  Company Number: GBWYE212317JAN07

PATIENT
  Age: 50 Year
  Sex: Female

DRUGS (1)
  1. RAPAMUNE [Suspect]
     Dates: start: 20050101, end: 20070101

REACTIONS (5)
  - ABDOMINAL DISTENSION [None]
  - AMNESIA [None]
  - FATIGUE [None]
  - OEDEMA PERIPHERAL [None]
  - PAIN IN EXTREMITY [None]
